FAERS Safety Report 5042764-2 (Version None)
Quarter: 2006Q3

REPORT INFORMATION
  Report Type: 
  Country: None (occurrence: None)
  Receive Date: 20060705
  Receipt Date: 20060523
  Transmission Date: 20061208
  Serious: Yes (Other)
  Sender: FDA-Public Use
  Company Number: US-KINGPHARMUSA00001-K200600674

PATIENT
  Age: 74 Year
  Sex: Male

DRUGS (5)
  1. ALTACE [Suspect]
     Indication: HYPERTENSION
     Dosage: 5 MG, QD
     Route: 048
     Dates: start: 20021201, end: 20060517
  2. FELODIPINE [Suspect]
     Indication: HYPERTENSION
     Dosage: 5 MG, QD
     Route: 048
     Dates: start: 20021201, end: 20060517
  3. ALNA [Concomitant]
     Indication: MICTURITION DISORDER
     Dosage: 1 TABLET, QD
     Route: 048
     Dates: start: 20050301
  4. BELOC ZOK [Concomitant]
     Indication: HYPERTENSION
     Dosage: 2 TABLETS, QD
     Route: 048
  5. DIOVAN [Suspect]
     Indication: HYPERTENSION
     Dosage: 80 TO 160 MG, DAILY
     Route: 048
     Dates: start: 20050301

REACTIONS (6)
  - AMYOTROPHIC LATERAL SCLEROSIS [None]
  - ASTHENIA [None]
  - BLOOD CREATINE PHOSPHOKINASE INCREASED [None]
  - NEURODEGENERATIVE DISORDER [None]
  - POLYMYOSITIS [None]
  - WEIGHT DECREASED [None]
